FAERS Safety Report 4954465-7 (Version None)
Quarter: 2006Q1

REPORT INFORMATION
  Report Type: 
  Country: None (occurrence: None)
  Receive Date: 20060327
  Receipt Date: 20060315
  Transmission Date: 20060701
  Serious: Yes (Other)
  Sender: FDA-Public Use
  Company Number: 2006AP01292

PATIENT
  Age: 60 Year
  Sex: Female

DRUGS (1)
  1. IRESSA [Suspect]
     Indication: NON-SMALL CELL LUNG CANCER RECURRENT
     Route: 048

REACTIONS (3)
  - DEPRESSED LEVEL OF CONSCIOUSNESS [None]
  - MENINGITIS [None]
  - NAUSEA [None]
